FAERS Safety Report 7224646-0 (Version None)
Quarter: 2011Q1

REPORT INFORMATION
  Report Type: 
  Country: None (occurrence: None)
  Receive Date: 20110113
  Receipt Date: 20101217
  Transmission Date: 20110831
  Serious: Yes (Hospitalization)
  Sender: FDA-Public Use
  Company Number: FR-PFIZER INC-FR-WYE-G05575810

PATIENT
  Sex: Female

DRUGS (8)
  1. DISCOTRINE [Suspect]
     Dosage: 10.0 MG, 1X/DAY
     Route: 062
     Dates: start: 20090701, end: 20091119
  2. SIMVASTATIN [Suspect]
     Dosage: 20.0 MG, 1X/DAY
     Route: 048
     Dates: start: 20090701, end: 20091119
  3. FLECAINE [Suspect]
     Dosage: 50.0 MG, 2X/DAY
     Route: 048
     Dates: start: 20090701, end: 20091119
  4. EFFEXOR XR [Suspect]
     Dosage: 37.5 MG, 1X/DAY
     Route: 048
     Dates: start: 20090701, end: 20091119
  5. ALDACTAZINE [Suspect]
     Dosage: 1.0 DF, 1X/DAY
     Route: 048
     Dates: start: 20091016, end: 20091119
  6. SINTROM [Concomitant]
     Route: 065
  7. LEXOMIL [Concomitant]
     Route: 065
  8. NEXIUM [Concomitant]
     Route: 065

REACTIONS (7)
  - URINARY RETENTION [None]
  - HYPONATRAEMIA [None]
  - HYPOCHLORAEMIA [None]
  - ESCHERICHIA URINARY TRACT INFECTION [None]
  - DISORIENTATION [None]
  - CONFUSIONAL STATE [None]
  - FALL [None]
